FAERS Safety Report 7814075-0 (Version None)
Quarter: 2011Q4

REPORT INFORMATION
  Report Type: 
  Country: None (occurrence: None)
  Receive Date: 20111014
  Receipt Date: 20111005
  Transmission Date: 20120403
  Serious: Yes (Other)
  Sender: FDA-Public Use
  Company Number: US-JNJFOC-20111003429

PATIENT
  Age: 84 Year
  Sex: Female
  Weight: 58.97 kg

DRUGS (2)
  1. IMODIUM MULTI-SYMPTOM RELIEF [Suspect]
     Indication: DIARRHOEA
     Route: 048
     Dates: start: 20110901, end: 20111005
  2. IMODIUM MULTI-SYMPTOM RELIEF [Suspect]
     Route: 048

REACTIONS (6)
  - HYPOAESTHESIA [None]
  - PHARYNGEAL HYPOAESTHESIA [None]
  - DYSPHONIA [None]
  - DYSPHAGIA [None]
  - DYSGEUSIA [None]
  - PRODUCT QUALITY ISSUE [None]
